FAERS Safety Report 10578682 (Version 2)
Quarter: 2015Q3

REPORT INFORMATION
  Report Type: Spontaneous
  Country: US (occurrence: US)
  Receive Date: 20141112
  Receipt Date: 20150820
  Transmission Date: 20151125
  Serious: Yes (Hospitalization, Other)
  Sender: FDA-Public Use
  Company Number: US-BAYER-2014-166342

PATIENT
  Age: 42 Year
  Sex: Female
  Weight: 49.89 kg

DRUGS (1)
  1. OCELLA [Suspect]
     Active Substance: DROSPIRENONE\ETHINYL ESTRADIOL
     Dosage: UNK
     Route: 048
     Dates: start: 201210, end: 201211

REACTIONS (10)
  - General physical health deterioration [None]
  - Depression [None]
  - Paralysis [None]
  - Pain [None]
  - Cerebrovascular accident [None]
  - Thrombosis [None]
  - Injury [None]
  - Anxiety [None]
  - Coagulopathy [None]
  - Emotional distress [None]

NARRATIVE: CASE EVENT DATE: 20121101
